FAERS Safety Report 22234308 (Version 1)
Quarter: 2023Q2

REPORT INFORMATION
  Report Type: Spontaneous
  Country: US (occurrence: None)
  Receive Date: 20230418
  Receipt Date: 20230418
  Transmission Date: 20230722
  Serious: No
  Sender: FDA-Public Use
  Company Number: None

PATIENT
  Age: 7 Year
  Sex: Female
  Weight: 21.77 kg

DRUGS (1)
  1. XELJANZ [Suspect]
     Active Substance: TOFACITINIB CITRATE
     Indication: Juvenile idiopathic arthritis
     Dosage: INJECT 4MG (4ML) BY MOUTH TWICE DAILY  AS DIRECTED
     Route: 048
     Dates: start: 202204

REACTIONS (2)
  - Pyrexia [None]
  - Therapy interrupted [None]
